FAERS Safety Report 24941391 (Version 1)
Quarter: 2025Q1

REPORT INFORMATION
  Report Type: Spontaneous
  Country: JP (occurrence: JP)
  Receive Date: 20250207
  Receipt Date: 20250207
  Transmission Date: 20250409
  Serious: Yes (Other)
  Sender: REGENERON
  Company Number: JP-REGENERON-20250200027

PATIENT
  Sex: Female

DRUGS (1)
  1. LIBTAYO [Suspect]
     Active Substance: CEMIPLIMAB-RWLC
     Indication: Cervix carcinoma recurrent

REACTIONS (4)
  - Hepatitis acute [Unknown]
  - Pancreatitis acute [Unknown]
  - Neuropathy peripheral [Unknown]
  - Lymphoedema [Unknown]
